FAERS Safety Report 5398193-5 (Version None)
Quarter: 2007Q3

REPORT INFORMATION
  Report Type: 
  Country: None (occurrence: None)
  Receive Date: 20070726
  Receipt Date: 20070714
  Transmission Date: 20080115
  Serious: Yes (Other)
  Sender: FDA-Public Use
  Company Number: US-PFIZER INC-2007059803

PATIENT
  Sex: Female

DRUGS (7)
  1. CHANTIX [Suspect]
     Indication: SMOKING CESSATION THERAPY
  2. BENTYL [Concomitant]
  3. PEPCID [Concomitant]
  4. PREMARIN [Concomitant]
  5. PROMETRIUM [Concomitant]
  6. DYAZIDE [Concomitant]
  7. WELLBUTRIN [Concomitant]

REACTIONS (6)
  - ABDOMINAL DISTENSION [None]
  - ADRENAL NEOPLASM [None]
  - DIARRHOEA [None]
  - GALLBLADDER DISORDER [None]
  - PAIN [None]
  - WEIGHT INCREASED [None]
